FAERS Safety Report 11514452 (Version 3)
Quarter: 2015Q4

REPORT INFORMATION
  Report Type: Spontaneous
  Country: US (occurrence: US)
  Receive Date: 20150916
  Receipt Date: 20151113
  Transmission Date: 20160304
  Serious: Yes (Other)
  Sender: FDA-Public Use
  Company Number: US-AKORN PHARMACEUTICALS-2015AKN00496

PATIENT
  Sex: Male
  Weight: 83 kg

DRUGS (13)
  1. AMIKACIN [Suspect]
     Active Substance: AMIKACIN
     Indication: LUNG INFECTION
     Dosage: UNK, 1X/DAY
     Route: 042
     Dates: start: 2015, end: 201506
  2. ZYVOX [Suspect]
     Active Substance: LINEZOLID
     Indication: LUNG INFECTION
  3. CLARITHROMYCIN. [Suspect]
     Active Substance: CLARITHROMYCIN
     Indication: MYCOBACTERIUM AVIUM COMPLEX INFECTION
  4. CLARITHROMYCIN. [Suspect]
     Active Substance: CLARITHROMYCIN
     Indication: LUNG INFECTION
  5. ETHAMBUTOL [Suspect]
     Active Substance: ETHAMBUTOL HYDROCHLORIDE
     Indication: LUNG INFECTION
     Dosage: UNK
     Route: 048
     Dates: start: 2015
  6. ZYVOX [Suspect]
     Active Substance: LINEZOLID
     Indication: MYCOBACTERIUM AVIUM COMPLEX INFECTION
     Dosage: 600 MG, 1X/DAY
     Route: 048
     Dates: start: 201506
  7. AMIKACIN [Suspect]
     Active Substance: AMIKACIN
     Dosage: UNK, 3X/WEEK
     Route: 042
     Dates: start: 201506
  8. RIFAMPIN. [Suspect]
     Active Substance: RIFAMPIN
     Indication: MYCOBACTERIUM AVIUM COMPLEX INFECTION
     Dosage: UNK, 3X/WEEK
     Route: 048
     Dates: end: 201412
  9. RIFAMPIN. [Suspect]
     Active Substance: RIFAMPIN
     Indication: LUNG INFECTION
  10. AMIKACIN INHALATION [Suspect]
     Active Substance: AMIKACIN
     Indication: MYCOBACTERIUM AVIUM COMPLEX INFECTION
     Dosage: UNK
     Route: 055
     Dates: start: 2015
  11. AMIKACIN [Suspect]
     Active Substance: AMIKACIN
     Indication: MYCOBACTERIUM AVIUM COMPLEX INFECTION
     Dosage: UNK, 3X/WEEK
     Route: 042
     Dates: start: 201408
  12. AMIKACIN INHALATION [Suspect]
     Active Substance: AMIKACIN
     Indication: LUNG INFECTION
  13. ETHAMBUTOL [Suspect]
     Active Substance: ETHAMBUTOL HYDROCHLORIDE
     Indication: MYCOBACTERIUM AVIUM COMPLEX INFECTION
     Dosage: UNK
     Route: 048

REACTIONS (5)
  - Lung infection [None]
  - Condition aggravated [Unknown]
  - Hypercapnia [Unknown]
  - Respiratory gas exchange disorder [Unknown]
  - Drug ineffective [Unknown]
